FAERS Safety Report 4752694-9 (Version None)
Quarter: 2005Q3

REPORT INFORMATION
  Report Type: 
  Country: None (occurrence: None)
  Receive Date: 20050823
  Receipt Date: 20050818
  Transmission Date: 20060218
  Serious: Yes (Other)
  Sender: FDA-Public Use
  Company Number: 215759

PATIENT
  Age: 35 Year
  Sex: Female
  Weight: 53 kg

DRUGS (2)
  1. RAPTIVA [Suspect]
     Indication: PSORIASIS
     Dosage: 0.5 ML, 1/WEEK, SUBCUTANEOUS
     Route: 058
     Dates: start: 20041108, end: 20050601
  2. NARROW BAND UVB (PHOTOTHERAPY UVB) [Concomitant]

REACTIONS (3)
  - DEAFNESS [None]
  - EAR PAIN [None]
  - THERAPY NON-RESPONDER [None]
